FAERS Safety Report 18285275 (Version 1)
Quarter: 2020Q3

REPORT INFORMATION
  Report Type: Spontaneous
  Country: US (occurrence: US)
  Receive Date: 20200918
  Receipt Date: 20200918
  Transmission Date: 20201103
  Serious: Yes (Other)
  Sender: FDA-Public Use
  Company Number: US-ASTRAZENECA-2020SF17346

PATIENT
  Sex: Female

DRUGS (1)
  1. IMFINZI [Suspect]
     Active Substance: DURVALUMAB
     Route: 042

REACTIONS (7)
  - Muscular weakness [Not Recovered/Not Resolved]
  - Brain oedema [Unknown]
  - Thyroid disorder [Unknown]
  - Exophthalmos [Unknown]
  - Cardiac disorder [Not Recovered/Not Resolved]
  - Inflammation [Unknown]
  - Glaucoma [Unknown]
